FAERS Safety Report 4461879-0 (Version None)
Quarter: 2004Q3

REPORT INFORMATION
  Report Type: 
  Country: None (occurrence: None)
  Receive Date: 20040929
  Receipt Date: 20031110
  Transmission Date: 20050211
  Serious: No
  Sender: FDA-Public Use
  Company Number: US-GLAXOSMITHKLINE-A0439015A

PATIENT
  Age: 70 Year
  Sex: Female
  Weight: 86.4 kg

DRUGS (6)
  1. SEREVENT [Suspect]
     Indication: ASTHMA
     Dosage: 1PUFF TWICE PER DAY
     Route: 055
     Dates: start: 20030901, end: 20030902
  2. ADVAIR DISKUS 100/50 [Suspect]
     Indication: ASTHMA
     Route: 055
     Dates: start: 20030901
  3. BLOOD PRESSURE MEDICATION [Concomitant]
  4. COMBIVENT [Concomitant]
     Route: 048
  5. FUROSEMIDE [Concomitant]
  6. PROTONIX [Concomitant]

REACTIONS (2)
  - ASTHMA [None]
  - CONDITION AGGRAVATED [None]
